FAERS Safety Report 5053412-X (Version None)
Quarter: 2006Q2

REPORT INFORMATION
  Report Type: 
  Country: None (occurrence: None)
  Receive Date: 20060614
  Receipt Date: 20060224
  Transmission Date: 20061013
  Serious: Yes (Other)
  Sender: FDA-Public Use
  Company Number: 436936

PATIENT
  Age: 44 Year
  Sex: Female

DRUGS (4)
  1. BONIVA [Suspect]
     Indication: DRUG USE FOR UNKNOWN INDICATION
     Dosage: ORAL
     Route: 048
     Dates: start: 20060201
  2. PAXIL CR [Suspect]
     Indication: OBSESSIVE-COMPULSIVE DISORDER
     Dosage: 50 MG DAILY ORAL
     Route: 048
     Dates: start: 20050901
  3. LOTRONEX [Concomitant]
  4. PREDNISONE TAB [Concomitant]

REACTIONS (1)
  - GALACTORRHOEA [None]
